FAERS Safety Report 16301707 (Version 1)
Quarter: 2019Q2

REPORT INFORMATION
  Report Type: Spontaneous
  Country: US (occurrence: US)
  Receive Date: 20190511
  Receipt Date: 20190511
  Transmission Date: 20190711
  Serious: No
  Sender: FDA-Public Use
  Company Number: US-TAKEDA-2019TUS028211

PATIENT
  Age: 72 Year
  Sex: Female
  Weight: 56.69 kg

DRUGS (2)
  1. COLCRYS [Suspect]
     Active Substance: COLCHICINE
     Indication: CUTANEOUS VASCULITIS
     Dosage: 0.6 MILLIGRAM, BID
     Route: 065
     Dates: end: 20190428
  2. COLCRYS [Suspect]
     Active Substance: COLCHICINE
     Dosage: 0.6 MILLIGRAM, QD
     Route: 065

REACTIONS (3)
  - Off label use [Unknown]
  - White blood cell disorder [Unknown]
  - Arthralgia [Not Recovered/Not Resolved]

NARRATIVE: CASE EVENT DATE: 20190427
